FAERS Safety Report 7694154-1 (Version None)
Quarter: 2011Q3

REPORT INFORMATION
  Report Type: 
  Country: None (occurrence: None)
  Receive Date: 20110816
  Receipt Date: 20110803
  Transmission Date: 20111222
  Serious: Yes (Hospitalization)
  Sender: FDA-Public Use
  Company Number: 2008-04329

PATIENT
  Age: 71 Year
  Sex: Female
  Weight: 57 kg

DRUGS (13)
  1. REASEC (ATROPINE SULFATE, DIPHENOXYLATE HYDROCHLORIDE) [Concomitant]
  2. METOPROLOL TARTRATE [Concomitant]
  3. VELCADE [Suspect]
     Indication: MULTIPLE MYELOMA
     Dosage: 2.1 MG, INTRAVENOUS
     Route: 042
     Dates: start: 20080609, end: 20081020
  4. HYDROCORTONE [Concomitant]
  5. TRANSTEC (BUPRENORPHINE) [Concomitant]
  6. MELOXICAM [Concomitant]
  7. ACETAMINOPHEN [Concomitant]
  8. CERUCAL (METOCLOPRAMIDE HYDROCHLORIDE) [Concomitant]
  9. TENSIOMIN (CAPTOPRIL) [Concomitant]
  10. DEXAMETHASONE [Suspect]
     Indication: MULTIPLE MYELOMA
     Dosage: ORAL
     Route: 048
  11. FELODIPINE [Concomitant]
  12. BUPRENORPHINE [Concomitant]
  13. ACETYLCYSTEINE [Concomitant]

REACTIONS (2)
  - ERYSIPELAS [None]
  - CHILLS [None]
